FAERS Safety Report 8537252-2 (Version None)
Quarter: 2012Q3

REPORT INFORMATION
  Report Type: 
  Country: None (occurrence: None)
  Receive Date: 20120725
  Receipt Date: 20120723
  Transmission Date: 20120928
  Serious: No
  Sender: FDA-Public Use
  Company Number: US-PFIZER INC-2012156256

PATIENT
  Sex: Male
  Weight: 113 kg

DRUGS (7)
  1. CHANTIX [Suspect]
     Indication: SMOKING CESSATION THERAPY
     Dosage: 0.5 MG, 1X/DAY
     Route: 048
  2. CHANTIX [Suspect]
     Dosage: UNK
     Route: 048
     Dates: end: 20111001
  3. CHANTIX [Suspect]
     Dosage: UNK
     Route: 048
     Dates: start: 20110606
  4. CITALOPRAM [Concomitant]
     Indication: DEPRESSION
     Dosage: UNK
  5. LISINOPRIL [Concomitant]
     Indication: HYPERTENSION
     Dosage: UNK
  6. FUROSEMIDE [Concomitant]
     Dosage: UNK
  7. CITALOPRAM [Concomitant]
     Indication: MOOD ALTERED

REACTIONS (4)
  - DEPRESSED MOOD [None]
  - ABNORMAL DREAMS [None]
  - JOINT INJURY [None]
  - FEELING ABNORMAL [None]
